FAERS Safety Report 19394747 (Version 1)
Quarter: 2021Q2

REPORT INFORMATION
  Report Type: Spontaneous
  Country: US (occurrence: US)
  Receive Date: 20210609
  Receipt Date: 20210609
  Transmission Date: 20210717
  Serious: No
  Sender: FDA-Public Use
  Company Number: US-BAYER-2021-155124

PATIENT
  Age: 92 Year
  Sex: Female

DRUGS (3)
  1. CLARITIN [Suspect]
     Active Substance: LORATADINE
     Indication: HYPERSENSITIVITY
     Dosage: 3 DF
     Route: 048
     Dates: start: 20210605, end: 20210608
  2. LUTEIN + [Concomitant]
  3. FISH OIL [Concomitant]
     Active Substance: FISH OIL

REACTIONS (7)
  - Drug hypersensitivity [Not Recovered/Not Resolved]
  - Feeling jittery [Not Recovered/Not Resolved]
  - Pruritus [Not Recovered/Not Resolved]
  - Blood pressure increased [Not Recovered/Not Resolved]
  - Contraindicated product administered [Not Recovered/Not Resolved]
  - Dry mouth [Not Recovered/Not Resolved]
  - Contusion [Not Recovered/Not Resolved]

NARRATIVE: CASE EVENT DATE: 20210605
